FAERS Safety Report 16323366 (Version 1)
Quarter: 2019Q2

REPORT INFORMATION
  Report Type: Spontaneous
  Country: AT (occurrence: AT)
  Receive Date: 20190517
  Receipt Date: 20190517
  Transmission Date: 20190711
  Serious: Yes (Other)
  Sender: FDA-Public Use
  Company Number: AT-AMGEN-AUTSP2019075255

PATIENT
  Sex: Male

DRUGS (10)
  1. EPLERENONUM [Concomitant]
     Active Substance: EPLERENONE
     Dosage: UNK UNK, QD
  2. LANSOBENE [Concomitant]
     Dosage: UNK UNK, QD
  3. ENTRESTO [Concomitant]
     Active Substance: SACUBITRIL\VALSARTAN
     Dosage: UNK UNK, BID
  4. NOMEXOR [Concomitant]
     Active Substance: NEBIVOLOL HYDROCHLORIDE
     Dosage: 5 MILLIGRAM, QD
  5. EZETROL [Concomitant]
     Active Substance: EZETIMIBE
     Dosage: UNK, QD
  6. VIPDOMET [Concomitant]
     Active Substance: ALOGLIPTIN BENZOATE\METFORMIN HYDROCHLORIDE
     Dosage: 12.5 MILLIGRAM, BID
  7. REPATHA [Suspect]
     Active Substance: EVOLOCUMAB
     Indication: HYPERCHOLESTEROLAEMIA
     Dosage: UNK
     Route: 065
  8. VASTAREL [Concomitant]
     Active Substance: TRIMETAZIDINE DIHYDROCHLORIDE
     Dosage: 35 MILLIGRAM, BID
  9. ELIQUIS [Concomitant]
     Active Substance: APIXABAN
     Dosage: 5 MILLIGRAM, BID
  10. FURON [FUROSEMIDE] [Concomitant]
     Dosage: 40 MILLIGRAM (1/2), QD

REACTIONS (2)
  - Low density lipoprotein increased [Not Recovered/Not Resolved]
  - Rash generalised [Recovering/Resolving]
